FAERS Safety Report 15147293 (Version 1)
Quarter: 2018Q3

REPORT INFORMATION
  Report Type: Spontaneous
  Country: US (occurrence: US)
  Receive Date: 20180716
  Receipt Date: 20180716
  Transmission Date: 20181010
  Serious: No
  Sender: FDA-Public Use
  Company Number: US-009507513-1807USA003542

PATIENT
  Age: 52 Year
  Sex: Female

DRUGS (12)
  1. INVANZ [Suspect]
     Active Substance: ERTAPENEM SODIUM
     Indication: ESCHERICHIA INFECTION
  2. MEROPENEM. [Concomitant]
     Active Substance: MEROPENEM
     Indication: PERITONEAL ABSCESS
     Dosage: 1 G, Q8H
     Route: 042
  3. MEROPENEM. [Concomitant]
     Active Substance: MEROPENEM
     Indication: ESCHERICHIA INFECTION
  4. INVANZ [Suspect]
     Active Substance: ERTAPENEM SODIUM
     Indication: PERITONEAL ABSCESS
     Dosage: 1 G, Q12H
     Route: 042
  5. INVANZ [Suspect]
     Active Substance: ERTAPENEM SODIUM
     Indication: ENTEROBACTER INFECTION
  6. LINEZOLID. [Concomitant]
     Active Substance: LINEZOLID
     Indication: PERITONEAL ABSCESS
     Dosage: 600 MG, Q12H
     Route: 042
  7. MEROPENEM. [Concomitant]
     Active Substance: MEROPENEM
     Indication: ENTEROBACTER INFECTION
  8. LINEZOLID. [Concomitant]
     Active Substance: LINEZOLID
     Indication: ENTEROBACTER INFECTION
  9. MEROPENEM. [Concomitant]
     Active Substance: MEROPENEM
     Indication: ENTEROCOCCAL INFECTION
  10. INVANZ [Suspect]
     Active Substance: ERTAPENEM SODIUM
     Indication: ENTEROCOCCAL INFECTION
  11. LINEZOLID. [Concomitant]
     Active Substance: LINEZOLID
     Indication: ENTEROCOCCAL INFECTION
     Dosage: UNK
     Route: 048
  12. LINEZOLID. [Concomitant]
     Active Substance: LINEZOLID
     Indication: ESCHERICHIA INFECTION

REACTIONS (1)
  - Off label use [Unknown]
